FAERS Safety Report 5586123-2 (Version None)
Quarter: 2007Q4

REPORT INFORMATION
  Report Type: 
  Country: None (occurrence: None)
  Receive Date: 20071205
  Receipt Date: 20061115
  Transmission Date: 20080405
  Serious: Yes (Other)
  Sender: FDA-Public Use
  Company Number: HQWYE954120NOV06

PATIENT
  Age: 75 Year
  Sex: Male
  Weight: 64.92 kg

DRUGS (7)
  1. EFFEXOR XR [Suspect]
     Indication: DEPRESSION
     Dosage: 75 MG 1 X PER 1 DAY, ORAL
     Route: 048
     Dates: start: 20061001, end: 20061101
  2. DEXTROAMPHETAMINE SULFATE [Suspect]
     Indication: ATTENTION DEFICIT/HYPERACTIVITY DISORDER
     Dosage: 5 MG 2 X PER 1 DAY, ORAL
     Route: 048
     Dates: start: 20061121, end: 20061122
  3. CALCIUM CITRATE (CALCIUM CITRATE) [Concomitant]
  4. OMEGA 3 (FISH OIL) [Concomitant]
  5. THYROID TAB [Concomitant]
  6. RANITIDINE [Concomitant]
  7. PREDNISONE TAB [Concomitant]

REACTIONS (3)
  - RASH GENERALISED [None]
  - RASH PRURITIC [None]
  - SLEEP DISORDER [None]
